FAERS Safety Report 7994906-4 (Version None)
Quarter: 2011Q4

REPORT INFORMATION
  Report Type: 
  Country: None (occurrence: None)
  Receive Date: 20111220
  Receipt Date: 20111206
  Transmission Date: 20120403
  Serious: Yes (Life-Threatening, Hospitalization, Other)
  Sender: FDA-Public Use
  Company Number: DE-ROCHE-633126

PATIENT
  Sex: Female
  Weight: 103 kg

DRUGS (6)
  1. HYDROCHLOROTHIAZIDE/RAMIPRIL [Concomitant]
     Indication: HYPERTENSION
     Route: 048
  2. ACTEMRA [Suspect]
     Indication: RHEUMATOID ARTHRITIS
     Route: 042
     Dates: start: 20090325, end: 20090325
  3. BISOPROLOL FUMARATE [Concomitant]
  4. PREDNISOLONE [Suspect]
     Indication: RHEUMATOID ARTHRITIS
     Route: 048
  5. ACTEMRA [Suspect]
     Route: 042
     Dates: start: 20090430, end: 20090430
  6. MABTHERA [Suspect]
     Indication: RHEUMATOID ARTHRITIS
     Dates: start: 20090811, end: 20100616

REACTIONS (10)
  - STREPTOCOCCAL SEPSIS [None]
  - CHEMICAL PERITONITIS [None]
  - CHILLS [None]
  - POST PROCEDURAL FISTULA [None]
  - PYREXIA [None]
  - CHOLECYSTECTOMY [None]
  - MICTURITION URGENCY [None]
  - NIGHT SWEATS [None]
  - CHOLELITHIASIS [None]
  - PORTAL VEIN THROMBOSIS [None]
